FAERS Safety Report 6775144-X (Version None)
Quarter: 2010Q2

REPORT INFORMATION
  Report Type: 
  Country: None (occurrence: None)
  Receive Date: 20100617
  Receipt Date: 20100608
  Transmission Date: 20101027
  Serious: Yes (Death)
  Sender: FDA-Public Use
  Company Number: ES-ABBOTT-10P-144-0649370-00

PATIENT
  Age: 74 Year
  Sex: Female

DRUGS (2)
  1. SECALIP [Suspect]
     Indication: HYPERCHOLESTEROLAEMIA
     Dates: start: 20100305, end: 20100316
  2. CRESTOR [Suspect]
     Indication: HYPERCHOLESTEROLAEMIA
     Route: 048
     Dates: start: 20100305, end: 20100316

REACTIONS (1)
  - RHABDOMYOLYSIS [None]
